FAERS Safety Report 16233563 (Version 1)
Quarter: 2019Q2

REPORT INFORMATION
  Report Type: Spontaneous
  Country: US (occurrence: US)
  Receive Date: 20190424
  Receipt Date: 20190424
  Transmission Date: 20190711
  Serious: Yes (Death, Other)
  Sender: FDA-Public Use
  Company Number: PHHY2019US088925

PATIENT
  Age: 18 Year
  Sex: Male

DRUGS (1)
  1. CTL019 [Suspect]
     Active Substance: TISAGENLECLEUCEL
     Indication: ACUTE LYMPHOCYTIC LEUKAEMIA RECURRENT
     Dosage: UNK
     Route: 041
     Dates: start: 201506

REACTIONS (7)
  - Cytokine release syndrome [Unknown]
  - Sepsis [Unknown]
  - Acute lymphocytic leukaemia recurrent [Unknown]
  - Nervous system disorder [Unknown]
  - Engraftment syndrome [Unknown]
  - Pancytopenia [Unknown]
  - Multiple organ dysfunction syndrome [Fatal]

NARRATIVE: CASE EVENT DATE: 201606
